FAERS Safety Report 7397861-3 (Version None)
Quarter: 2011Q2

REPORT INFORMATION
  Report Type: 
  Country: None (occurrence: None)
  Receive Date: 20110406
  Receipt Date: 20110401
  Transmission Date: 20111010
  Serious: Yes (Other)
  Sender: FDA-Public Use
  Company Number: US-PFIZER INC-2010105165

PATIENT
  Sex: Female
  Weight: 53.061 kg

DRUGS (12)
  1. IRON [Concomitant]
     Dosage: UNK
  2. GLYBURIDE [Suspect]
     Dosage: 10 MG, 2X/DAY
     Dates: start: 20100401
  3. NORVASC [Concomitant]
  4. BENICAR [Concomitant]
  5. PROTONIX [Suspect]
     Indication: OESOPHAGEAL DISORDER
     Dosage: 40 MG, 1X/DAY
     Route: 048
     Dates: start: 20070101, end: 20091101
  6. METFORMIN HCL [Suspect]
     Indication: DIABETES MELLITUS
     Dosage: 500 MG, 1X/DAY
  7. MULTIVITAMIN [Concomitant]
  8. GLYBURIDE [Suspect]
     Dosage: 2.5 MG, 1X/DAY
     Dates: end: 20100401
  9. ZITHROMAX [Suspect]
     Dosage: UNK
     Dates: start: 20090401
  10. PROTONIX [Suspect]
     Indication: GASTROINTESTINAL HAEMORRHAGE
     Dosage: HALF A TABLET
     Route: 048
     Dates: start: 20091101
  11. GLYBURIDE [Suspect]
     Indication: DIABETES MELLITUS
     Dosage: 5 MG, 2X/DAY
     Dates: end: 20100401
  12. GLYBURIDE [Suspect]
     Dosage: 5 MG, 1X/DAY
     Dates: start: 20100401

REACTIONS (10)
  - CHRONIC MYELOID LEUKAEMIA [None]
  - BODY TEMPERATURE INCREASED [None]
  - ANAEMIA [None]
  - DISCOMFORT [None]
  - WEIGHT DECREASED [None]
  - GENERAL PHYSICAL HEALTH DETERIORATION [None]
  - DRUG ADMINISTRATION ERROR [None]
  - DIABETES MELLITUS INADEQUATE CONTROL [None]
  - EPISTAXIS [None]
  - BLOOD IRON DECREASED [None]
